FAERS Safety Report 12999695 (Version 2)
Quarter: 2016Q4

REPORT INFORMATION
  Report Type: Report from Study
  Country: MX (occurrence: MX)
  Receive Date: 20161205
  Receipt Date: 20161209
  Transmission Date: 20170207
  Serious: Yes (Other)
  Sender: FDA-Public Use
  Company Number: PHHY2016MX134908

PATIENT
  Age: 61 Year
  Sex: Female
  Weight: 86 kg

DRUGS (3)
  1. CO-DIOVAN [Suspect]
     Active Substance: HYDROCHLOROTHIAZIDE\VALSARTAN
     Dosage: 0.5 DF, (HYDROCHLOROTHIAZIDE 12.5 MG AND VALSARTAN 160 MG), QD
     Route: 048
  2. CO-DIOVAN [Suspect]
     Active Substance: HYDROCHLOROTHIAZIDE\VALSARTAN
     Indication: HYPERTENSION
     Dosage: 1 DF (HYDROCHLOROTHIAZIDE 12.5 MG AND VALSARTAN 160 MG), QD
     Route: 048
  3. REDEVANT [Concomitant]
     Active Substance: PITAVASTATIN
     Indication: BLOOD TRIGLYCERIDES ABNORMAL
     Dosage: 5 YEARS AGO
     Route: 048

REACTIONS (6)
  - Malaise [Recovered/Resolved]
  - Drug prescribing error [Not Recovered/Not Resolved]
  - Nephrolithiasis [Recovered/Resolved]
  - Hypotonia [Unknown]
  - Blood pressure decreased [Recovered/Resolved]
  - Wrong technique in product usage process [Not Recovered/Not Resolved]

NARRATIVE: CASE EVENT DATE: 201607
